FAERS Safety Report 8457065-X (Version None)
Quarter: 2012Q2

REPORT INFORMATION
  Report Type: 
  Country: None (occurrence: None)
  Receive Date: 20120621
  Receipt Date: 20120614
  Transmission Date: 20120825
  Serious: Yes (Death, Hospitalization)
  Sender: FDA-Public Use
  Company Number: NL-TEVA-343976ISR

PATIENT
  Sex: Female

DRUGS (4)
  1. LISINOPRIL HYDROCHLORTHIAZID [Concomitant]
     Dosage: 20/12.5
     Dates: end: 20120418
  2. TAXOL [Suspect]
     Indication: BREAST CANCER
     Dosage: DAY 1.8 AND 15 EVERY 21 DAYS
     Route: 042
     Dates: start: 20110415, end: 20110823
  3. DOXORUBICIN HCL [Suspect]
     Indication: BREAST CANCER
     Route: 042
     Dates: start: 20120405, end: 20120405
  4. AVASTIN [Suspect]
     Indication: BREAST CANCER
     Dosage: DAY 1 AND 15 EVERY 28 DAYS + DAY 1 EVERY 21 DAYS (AFTER DISCONTINUATION OF PACLITAXEL)
     Route: 042
     Dates: start: 20110415, end: 20120313

REACTIONS (3)
  - LEUKOPENIA [None]
  - DISEASE PROGRESSION [None]
  - HYPOPHAGIA [None]
